FAERS Safety Report 21584502 (Version 1)
Quarter: 2022Q4

REPORT INFORMATION
  Report Type: Spontaneous
  Country: US (occurrence: US)
  Receive Date: 20221111
  Receipt Date: 20221111
  Transmission Date: 20230112
  Serious: No
  Sender: FDA-Public Use
  Company Number: US-PFIZER INC-PV202200101014

PATIENT
  Age: 7 Decade
  Sex: Female

DRUGS (4)
  1. METHOTREXATE SODIUM [Suspect]
     Active Substance: METHOTREXATE SODIUM
     Dosage: UNK, WEEKLY (FIFTEEN, UH, WEEKLY)
  2. ZOLOFT [Suspect]
     Active Substance: SERTRALINE HYDROCHLORIDE
     Dosage: UNK (FIFTY [INAUDIBLE])
  3. FOLIC ACID [Suspect]
     Active Substance: FOLIC ACID
     Dosage: UNK, DAILY
  4. AMITRIPTYLINE [Suspect]
     Active Substance: AMITRIPTYLINE
     Dosage: UNK, DAILY (NIGHTLY)

REACTIONS (4)
  - Blood potassium increased [Unknown]
  - Arthralgia [Recovered/Resolved]
  - Migraine [Unknown]
  - Blood alkaline phosphatase increased [Unknown]
